FAERS Safety Report 12787893 (Version 1)
Quarter: 2016Q3

REPORT INFORMATION
  Report Type: Spontaneous
  Country: US (occurrence: US)
  Receive Date: 20160928
  Receipt Date: 20160928
  Transmission Date: 20161109
  Serious: No
  Sender: FDA-Public Use
  Company Number: US-PFIZER INC-2014223927

PATIENT
  Age: 62 Year
  Sex: Female

DRUGS (11)
  1. OXYCODONE [Suspect]
     Active Substance: OXYCODONE
     Dosage: UNK
  2. HALDOL [Suspect]
     Active Substance: HALOPERIDOL
     Dosage: UNK
  3. DILAUDID [Suspect]
     Active Substance: HYDROMORPHONE HYDROCHLORIDE
     Dosage: UNK
  4. MELOXICAM. [Suspect]
     Active Substance: MELOXICAM
     Dosage: UNK
  5. MIDAZOLAM [Suspect]
     Active Substance: MIDAZOLAM\MIDAZOLAM HYDROCHLORIDE
     Dosage: UNK
  6. ATIVAN [Suspect]
     Active Substance: LORAZEPAM
     Dosage: UNK
  7. HYDROCORTISONE. [Suspect]
     Active Substance: HYDROCORTISONE
     Dosage: UNK
  8. ASPIRIN. [Suspect]
     Active Substance: ASPIRIN
     Dosage: UNK
  9. ALEVE [Suspect]
     Active Substance: NAPROXEN SODIUM
     Dosage: UNK
  10. HYDROCODONE W/ACETAMINOPHEN [Suspect]
     Active Substance: ACETAMINOPHEN\HYDROCODONE BITARTRATE
     Dosage: UNK
  11. DICYCLOMINE [Suspect]
     Active Substance: DICYCLOMINE HYDROCHLORIDE
     Dosage: UNK

REACTIONS (1)
  - Drug hypersensitivity [Unknown]
